FAERS Safety Report 25056910 (Version 3)
Quarter: 2025Q3

REPORT INFORMATION
  Report Type: Spontaneous
  Country: CA (occurrence: CA)
  Receive Date: 20250310
  Receipt Date: 20250912
  Transmission Date: 20251020
  Serious: Yes (Other)
  Sender: BOEHRINGER INGELHEIM
  Company Number: CA-BoehringerIngelheim-2025-BI-013239

PATIENT

DRUGS (3)
  1. OFEV [Suspect]
     Active Substance: NINTEDANIB
     Indication: Pulmonary fibrosis
  2. OFEV [Suspect]
     Active Substance: NINTEDANIB
  3. OFEV [Suspect]
     Active Substance: NINTEDANIB

REACTIONS (13)
  - Pulmonary fibrosis [Unknown]
  - Disease progression [Unknown]
  - Nausea [Not Recovered/Not Resolved]
  - Diarrhoea [Not Recovered/Not Resolved]
  - Illness [Unknown]
  - Fatigue [Unknown]
  - Dyspnoea [Unknown]
  - Tremor [Unknown]
  - Vomiting [Recovering/Resolving]
  - Decreased activity [Unknown]
  - Drug intolerance [Unknown]
  - General physical health deterioration [Unknown]
  - Oxygen saturation decreased [Unknown]
